FAERS Safety Report 13061231 (Version 2)
Quarter: 2017Q1

REPORT INFORMATION
  Report Type: Spontaneous
  Country: JP (occurrence: JP)
  Receive Date: 20161226
  Receipt Date: 20170124
  Transmission Date: 20170428
  Serious: Yes (Life-Threatening, Hospitalization, Other)
  Sender: FDA-Public Use
  Company Number: JP-TAKEDA-2016TJP026054

PATIENT
  Age: 81 Year
  Sex: Male
  Weight: 50 kg

DRUGS (2)
  1. TAKEPRON OD TABLETS 30 [Suspect]
     Active Substance: LANSOPRAZOLE
     Indication: PEPTIC ULCER
     Dosage: 30 MG, QD
     Route: 048
     Dates: start: 20161010, end: 20161110
  2. MARZULENE S COMBINATION [Concomitant]
     Active Substance: GLUTAMINE\SODIUM GUALENATE
     Indication: PEPTIC ULCER
     Dosage: 0.7 G, TID
     Route: 048
     Dates: start: 20161010, end: 20161110

REACTIONS (5)
  - Dysstasia [Recovered/Resolved]
  - Agranulocytosis [Recovered/Resolved]
  - Pollakiuria [Unknown]
  - Febrile neutropenia [Recovered/Resolved]
  - Muscular weakness [Recovered/Resolved]

NARRATIVE: CASE EVENT DATE: 20161110
